FAERS Safety Report 5122480-9 (Version None)
Quarter: 2006Q4

REPORT INFORMATION
  Report Type: 
  Country: None (occurrence: None)
  Receive Date: 20061004
  Receipt Date: 20060925
  Transmission Date: 20070319
  Serious: Yes (Other)
  Sender: FDA-Public Use
  Company Number: 230070

PATIENT
  Age: 55 Year
  Sex: Male
  Weight: 93 kg

DRUGS (5)
  1. AVASTIN [Suspect]
     Indication: ACUTE LYMPHOCYTIC LEUKAEMIA
     Dosage: SEE IMAGE
     Route: 042
     Dates: start: 20060530, end: 20060710
  2. AVASTIN [Suspect]
     Indication: ACUTE LYMPHOCYTIC LEUKAEMIA
     Dosage: SEE IMAGE
     Route: 042
     Dates: start: 20060417
  3. ERLOTINIB (ERLOTINIB) TABLET [Suspect]
     Indication: ACUTE LYMPHOCYTIC LEUKAEMIA
  4. CARBOPLATIN [Suspect]
     Indication: ACUTE LYMPHOCYTIC LEUKAEMIA
  5. PACLITAXEL [Suspect]
     Indication: ACUTE LYMPHOCYTIC LEUKAEMIA

REACTIONS (4)
  - CYTOMEGALOVIRUS INFECTION [None]
  - DYSPHAGIA [None]
  - RADIATION OESOPHAGITIS [None]
  - VIRAL OESOPHAGITIS [None]
